FAERS Safety Report 9254615 (Version 1)
Quarter: 2013Q2

REPORT INFORMATION
  Report Type: Report from Study
  Country: CA (occurrence: CA)
  Receive Date: 20130425
  Receipt Date: 20130425
  Transmission Date: 20140414
  Serious: Yes (Hospitalization)
  Sender: FDA-Public Use
  Company Number: CA-JNJFOC-20130411329

PATIENT
  Age: 36 Year
  Sex: Female
  Weight: 87 kg

DRUGS (5)
  1. REMICADE [Suspect]
     Indication: ANKYLOSING SPONDYLITIS
     Route: 042
     Dates: start: 20121122
  2. ELAVIL [Concomitant]
     Route: 065
  3. OMEPRAZOLE [Concomitant]
     Route: 065
  4. VITAMIN D [Concomitant]
     Route: 065
  5. MELOXICAM [Concomitant]
     Route: 065

REACTIONS (1)
  - Bladder repair [Recovering/Resolving]
